FAERS Safety Report 20547439 (Version 1)
Quarter: 2022Q1

REPORT INFORMATION
  Report Type: Spontaneous
  Country: GB (occurrence: GB)
  Receive Date: 20220303
  Receipt Date: 20220303
  Transmission Date: 20220423
  Serious: Yes (Life-Threatening, Hospitalization, Other)
  Sender: FDA-Public Use
  Company Number: None

PATIENT
  Age: 72 Year
  Sex: Male

DRUGS (9)
  1. FLUOROURACIL [Suspect]
     Active Substance: FLUOROURACIL
     Indication: Adenocarcinoma
  2. ATORVASTATIN [Concomitant]
     Active Substance: ATORVASTATIN
  3. CO-DYDRAMOL [Concomitant]
     Active Substance: ACETAMINOPHEN\DIHYDROCODEINE
     Dosage: 10MG/500MG. 1-2 QDS PRN
  4. DICLOFENAC [Concomitant]
     Active Substance: DICLOFENAC
     Dosage: APPLY QDS PRN
  5. CHOLECALCIFEROL [Concomitant]
     Active Substance: CHOLECALCIFEROL
  6. DERMOL [Concomitant]
     Active Substance: BENZALKONIUM CHLORIDE\CHLORHEXIDINE HYDROCHLORIDE\ISOPROPYL MYRISTATE\PARAFFIN
  7. HYDROMOL CREAM [Concomitant]
  8. PENICILLIN V [Concomitant]
     Active Substance: PENICILLIN V
     Dosage: LONG-TERM
  9. ALBUTEROL [Concomitant]
     Active Substance: ALBUTEROL
     Dosage: 2 PUFFS QDS PRN
     Route: 055

REACTIONS (5)
  - Acute myocardial infarction [Recovered/Resolved with Sequelae]
  - Chest pain [Unknown]
  - Hypertension [Unknown]
  - Cardiogenic shock [Unknown]
  - Atrial fibrillation [Unknown]

NARRATIVE: CASE EVENT DATE: 20211208
